FAERS Safety Report 7470008-0 (Version None)
Quarter: 2011Q2

REPORT INFORMATION
  Report Type: 
  Country: None (occurrence: None)
  Receive Date: 20110510
  Receipt Date: 20080125
  Transmission Date: 20111010
  Serious: Yes (Hospitalization)
  Sender: FDA-Public Use
  Company Number: US-CELGENEUS-163-21880-08011454

PATIENT
  Sex: Female

DRUGS (10)
  1. CALCIUM [Concomitant]
     Route: 065
  2. MEGACE [Concomitant]
     Route: 065
     Dates: end: 20070607
  3. PREMARIN [Concomitant]
     Route: 065
     Dates: end: 20070807
  4. HYDREA [Concomitant]
     Indication: MYELOPROLIFERATIVE DISORDER
     Route: 065
     Dates: start: 20070829
  5. MULTI-VITAMIN [Concomitant]
     Route: 065
  6. ASPIRIN [Concomitant]
     Route: 065
     Dates: start: 20070828
  7. REVLIMID [Suspect]
     Indication: MYELOPROLIFERATIVE DISORDER
     Dosage: 10 MILLIGRAM
     Route: 048
     Dates: start: 20070814, end: 20070828
  8. TRIAMTERENE [Concomitant]
     Route: 065
     Dates: end: 20070828
  9. PROTONIX [Concomitant]
     Route: 065
     Dates: start: 20070524, end: 20071002
  10. PREDNISONE [Concomitant]
     Indication: MYELOPROLIFERATIVE DISORDER
     Route: 065
     Dates: start: 20070814, end: 20070828

REACTIONS (3)
  - PRESYNCOPE [None]
  - DIZZINESS [None]
  - THROMBOCYTOSIS [None]
